APPROVED DRUG PRODUCT: AMLODIPINE BESYLATE, VALSARTAN AND HYDROCHLOROTHIAZIDE
Active Ingredient: AMLODIPINE BESYLATE; HYDROCHLOROTHIAZIDE; VALSARTAN
Strength: EQ 5MG BASE;25MG;160MG
Dosage Form/Route: TABLET;ORAL
Application: A201593 | Product #002
Applicant: TORRENT PHARMACEUTICALS LTD
Approved: Jun 3, 2015 | RLD: No | RS: No | Type: DISCN